FAERS Safety Report 14265596 (Version 2)
Quarter: 2017Q4

REPORT INFORMATION
  Report Type: Spontaneous
  Country: AU (occurrence: AU)
  Receive Date: 20171208
  Receipt Date: 20171222
  Transmission Date: 20180321
  Serious: Yes (Death, Other)
  Sender: FDA-Public Use
  Company Number: AU-ALEXION PHARMACEUTICALS INC-A201713722

PATIENT
  Age: 18 Year
  Sex: Female

DRUGS (1)
  1. SOLIRIS [Suspect]
     Active Substance: ECULIZUMAB
     Indication: ATYPICAL HAEMOLYTIC URAEMIC SYNDROME
     Dosage: 900 MG, UNK
     Route: 065
     Dates: start: 20171124

REACTIONS (3)
  - Hepatic failure [Fatal]
  - Malaise [Unknown]
  - Histiocytosis haematophagic [Unknown]

NARRATIVE: CASE EVENT DATE: 20171208
